FAERS Safety Report 9807770 (Version 1)
Quarter: 2014Q1

REPORT INFORMATION
  Report Type: Spontaneous
  Country: US (occurrence: US)
  Receive Date: 20140110
  Receipt Date: 20140110
  Transmission Date: 20141002
  Serious: Yes (Death)
  Sender: FDA-Public Use
  Company Number: US-BAYER-2014-002001

PATIENT
  Age: 58 Year
  Sex: Male

DRUGS (6)
  1. NAPROXEN SODIUM ({= 220 MG) [Suspect]
  2. TRANDOLAPRIL [Suspect]
  3. VERAPAMIL [Suspect]
  4. SILDENAFIL [Suspect]
  5. ALPRAZOLAM [Suspect]
  6. OMEPRAZOLE [Suspect]

REACTIONS (1)
  - Toxicity to various agents [Fatal]
